FAERS Safety Report 13828281 (Version 1)
Quarter: 2017Q3

REPORT INFORMATION
  Report Type: Spontaneous
  Country: CN (occurrence: CN)
  Receive Date: 20170803
  Receipt Date: 20170803
  Transmission Date: 20171127
  Serious: Yes (Other)
  Sender: FDA-Public Use
  Company Number: CN-ROCHE-1970891

PATIENT
  Age: 16 Year
  Sex: Female
  Weight: 56 kg

DRUGS (3)
  1. ROCEPHIN [Suspect]
     Active Substance: CEFTRIAXONE SODIUM
     Indication: ENTEROCOLITIS HAEMORRHAGIC
  2. SODIUM CHLORIDE. [Concomitant]
     Active Substance: SODIUM CHLORIDE
     Route: 041
     Dates: start: 20170410, end: 20170410
  3. ROCEPHIN [Suspect]
     Active Substance: CEFTRIAXONE SODIUM
     Indication: DIARRHOEA
     Route: 041
     Dates: start: 20170410, end: 20170410

REACTIONS (10)
  - Erythema [Recovering/Resolving]
  - Abdominal pain [Recovering/Resolving]
  - Nausea [Recovering/Resolving]
  - Rash [Recovering/Resolving]
  - Wheezing [Recovering/Resolving]
  - Chest discomfort [Recovering/Resolving]
  - Diarrhoea [Recovering/Resolving]
  - Temperature intolerance [Recovering/Resolving]
  - Pruritus [Recovering/Resolving]
  - Vomiting [Recovering/Resolving]

NARRATIVE: CASE EVENT DATE: 20170410
